FAERS Safety Report 4898451-4 (Version None)
Quarter: 2006Q1

REPORT INFORMATION
  Report Type: 
  Country: None (occurrence: None)
  Receive Date: 20060202
  Receipt Date: 20060126
  Transmission Date: 20060701
  Serious: Yes (Hospitalization)
  Sender: FDA-Public Use
  Company Number: PHBS2006PL01537

PATIENT
  Age: 23 Year
  Sex: Female

DRUGS (1)
  1. TRILEPTAL [Suspect]
     Indication: EPILEPSY
     Dosage: 600 MG/D
     Route: 048

REACTIONS (10)
  - ABDOMINAL PAIN LOWER [None]
  - BLOOD CALCIUM DECREASED [None]
  - GASTRITIS [None]
  - HYPOCALCAEMIA [None]
  - NAUSEA [None]
  - OVARIAN CYST [None]
  - SURGERY [None]
  - TETANY [None]
  - TONIC CONVULSION [None]
  - VOMITING [None]
